FAERS Safety Report 16246494 (Version 1)
Quarter: 2019Q2

REPORT INFORMATION
  Report Type: Spontaneous
  Country: US (occurrence: US)
  Receive Date: 20190427
  Receipt Date: 20190427
  Transmission Date: 20190711
  Serious: Yes (Hospitalization, Other)
  Sender: FDA-Public Use
  Company Number: US-AUROBINDO-AUR-APL-2019-023745

PATIENT

DRUGS (7)
  1. CLOZAPINE. [Suspect]
     Active Substance: CLOZAPINE
     Indication: SCHIZOPHRENIA
     Dosage: 300 MILLIGRAM, TWO TIMES A DAY
     Route: 065
  2. RISPERIDONE. [Interacting]
     Active Substance: RISPERIDONE
     Indication: SCHIZOPHRENIA
     Dosage: 37.5 MILLIGRAM, IN TOTAL
     Route: 030
  3. RISPERIDONE. [Interacting]
     Active Substance: RISPERIDONE
     Dosage: 1.5 MILLIGRAM, DAILY,AT BEDTIME
     Route: 065
  4. RISPERIDONE. [Interacting]
     Active Substance: RISPERIDONE
     Dosage: 2 MILLIGRAM, TWO TIMES A DAY
     Route: 065
  5. RISPERIDONE. [Interacting]
     Active Substance: RISPERIDONE
     Dosage: 37.5 MILLIGRAM, 2 WEEKS
     Route: 030
  6. LORAZEPAM. [Concomitant]
     Active Substance: LORAZEPAM
     Indication: ANXIETY
     Dosage: 1 MILLIGRAM, TWO TIMES A DAY
     Route: 065
  7. SERTRALINE [Concomitant]
     Active Substance: SERTRALINE HYDROCHLORIDE
     Indication: AFFECTIVE DISORDER
     Dosage: 200 MILLIGRAM, DAILY
     Route: 065

REACTIONS (4)
  - Drug interaction [Recovered/Resolved]
  - Dysphemia [Recovered/Resolved]
  - Hypotonia [Recovered/Resolved]
  - Myoclonus [Recovered/Resolved]
